FAERS Safety Report 23814401 (Version 3)
Quarter: 2024Q2

REPORT INFORMATION
  Report Type: Spontaneous
  Country: DE (occurrence: DE)
  Receive Date: 20240503
  Receipt Date: 20240531
  Transmission Date: 20240716
  Serious: Yes (Other)
  Sender: FDA-Public Use
  Company Number: None

PATIENT
  Sex: Male

DRUGS (12)
  1. CITALOPRAM [Suspect]
     Active Substance: CITALOPRAM\CITALOPRAM HYDROBROMIDE
     Indication: Depression
     Route: 065
     Dates: start: 20240318
  2. AMLODIPINE [Concomitant]
     Active Substance: AMLODIPINE BESYLATE
     Indication: Cardiovascular disorder
     Dosage: 0-0-0.5
     Route: 065
     Dates: end: 20240318
  3. ASPIRIN [Concomitant]
     Active Substance: ASPIRIN
     Indication: Product used for unknown indication
     Dosage: 1-0-0
     Route: 065
     Dates: start: 20160202
  4. Berodual N Dosier-Aerosol [Concomitant]
     Indication: Product used for unknown indication
     Dosage: 1-3 TIMES DAILY
     Route: 065
     Dates: start: 20160202
  5. Folic acid 5 mg [Concomitant]
     Indication: Product used for unknown indication
     Dosage: 1-0-0
     Route: 065
     Dates: start: 20160202
  6. NITROLINGUAL [Concomitant]
     Active Substance: NITROGLYCERIN
     Indication: Angina pectoris
     Dosage: 1-2 PUFFS FOR ANGINA AS NECESSARY
     Route: 065
     Dates: start: 20160202
  7. NOVALGIN (METAMIZOLE SODIUM) [Concomitant]
     Active Substance: METAMIZOLE SODIUM
     Indication: Product used for unknown indication
     Dosage: 40 DROPS AS NEEDED, MAXIMUM DAILY DOSE OF 160 DROPS
     Route: 065
     Dates: start: 20160202
  8. PANTOPRAZOLE [Concomitant]
     Active Substance: PANTOPRAZOLE
     Indication: Product used for unknown indication
     Dosage: 1-0-0
     Route: 065
     Dates: start: 20160202
  9. RANEXA [Concomitant]
     Active Substance: RANOLAZINE
     Indication: Product used for unknown indication
     Dosage: 1-0-1
     Route: 065
     Dates: start: 20160202
  10. SIMVASTATIN [Concomitant]
     Active Substance: SIMVASTATIN
     Indication: Product used for unknown indication
     Dosage: 0-0-1
     Route: 065
     Dates: start: 20160202
  11. Tilidin 200/16 [Concomitant]
     Indication: Pain
     Dosage: 1-0-1 TO 4X1 B PAIN
     Route: 065
     Dates: start: 20160202
  12. Vigantoletten 1.000 IE [Concomitant]
     Indication: Product used for unknown indication
     Dosage: 1-0-0
     Route: 065
     Dates: start: 20160202

REACTIONS (17)
  - Tinnitus [Unknown]
  - Migraine [Unknown]
  - Bruxism [Unknown]
  - Memory impairment [Unknown]
  - Hypersomnia [Unknown]
  - Muscle twitching [Unknown]
  - Dyspnoea [Unknown]
  - Dizziness postural [Unknown]
  - Sleep disorder [Unknown]
  - Alopecia [Unknown]
  - Tremor [Unknown]
  - Syncope [Unknown]
  - Abnormal dreams [Unknown]
  - Atrioventricular block second degree [Unknown]
  - Somnolence [Unknown]
  - Headache [Unknown]
  - Agitation [Unknown]
